FAERS Safety Report 7554579-1 (Version None)
Quarter: 2011Q2

REPORT INFORMATION
  Report Type: 
  Country: None (occurrence: None)
  Receive Date: 20110617
  Receipt Date: 20110602
  Transmission Date: 20111010
  Serious: Yes (Death, Other)
  Sender: FDA-Public Use
  Company Number: US-ROCHE-782167

PATIENT

DRUGS (3)
  1. CISPLATIN [Suspect]
     Indication: SMALL CELL LUNG CANCER EXTENSIVE STAGE
     Route: 065
  2. BEVACIZUMAB [Suspect]
     Indication: SMALL CELL LUNG CANCER EXTENSIVE STAGE
     Dosage: DAY 1 AT 21 DAY INTERVALS.
     Route: 065
  3. IRINOTECAN HYDROCHLORIDE [Suspect]
     Indication: SMALL CELL LUNG CANCER EXTENSIVE STAGE
     Dosage: DAYS 1, 8.
     Route: 065

REACTIONS (21)
  - HYPOKALAEMIA [None]
  - FATIGUE [None]
  - HYPERTENSION [None]
  - CEREBROVASCULAR ACCIDENT [None]
  - INTESTINAL PERFORATION [None]
  - ELECTROLYTE IMBALANCE [None]
  - HYPONATRAEMIA [None]
  - DIARRHOEA [None]
  - FEBRILE NEUTROPENIA [None]
  - THROMBOSIS [None]
  - PNEUMONITIS [None]
  - NAUSEA [None]
  - CARDIAC FAILURE CONGESTIVE [None]
  - INFECTION [None]
  - DECREASED APPETITE [None]
  - VOMITING [None]
  - DEHYDRATION [None]
  - WHITE BLOOD CELL DISORDER [None]
  - NEUTROPENIA [None]
  - THROMBOCYTOPENIA [None]
  - ANAEMIA [None]
